FAERS Safety Report 21001482 (Version 2)
Quarter: 2022Q3

REPORT INFORMATION
  Report Type: Spontaneous
  Country: US (occurrence: US)
  Receive Date: 20220624
  Receipt Date: 20220809
  Transmission Date: 20221026
  Serious: Yes (Other)
  Sender: FDA-Public Use
  Company Number: US-BRISTOL-MYERS SQUIBB COMPANY-2022-057033

PATIENT
  Age: 89 Year
  Sex: Male

DRUGS (1)
  1. POMALYST [Suspect]
     Active Substance: POMALIDOMIDE
     Indication: Plasma cell myeloma
     Dosage: EXPIRATION DATE: 31-OCT-2025
     Route: 048
     Dates: start: 202202

REACTIONS (4)
  - Musculoskeletal chest pain [Unknown]
  - Neuropathy peripheral [Unknown]
  - Arthralgia [Unknown]
  - Gait disturbance [Unknown]
